FAERS Safety Report 13388189 (Version 1)
Quarter: 2017Q1

REPORT INFORMATION
  Report Type: Spontaneous
  Country: US (occurrence: US)
  Receive Date: 20170330
  Receipt Date: 20170330
  Transmission Date: 20170429
  Serious: Yes (Other)
  Sender: FDA-Public Use
  Company Number: PHHY2017US041848

PATIENT
  Age: 8 Month
  Sex: Female
  Weight: 7.5 kg

DRUGS (5)
  1. HYDRALAZINE [Suspect]
     Active Substance: HYDRALAZINE HYDROCHLORIDE
     Indication: HYPERTENSION NEONATAL
     Dosage: UNK
     Route: 048
  2. PROPRANOLOL [Suspect]
     Active Substance: PROPRANOLOL HYDROCHLORIDE
     Indication: HYPERTENSION NEONATAL
     Dosage: UNK
     Route: 048
  3. CLONIDINE. [Suspect]
     Active Substance: CLONIDINE
     Indication: HYPERTENSION NEONATAL
     Dosage: UNK
     Route: 048
  4. NICARDIPINE SANDOZ [Suspect]
     Active Substance: NICARDIPINE
     Indication: HYPERTENSION NEONATAL
     Dosage: UNK
     Route: 041
  5. AMLODIPINE [Suspect]
     Active Substance: AMLODIPINE BESYLATE
     Indication: HYPERTENSION NEONATAL
     Dosage: UNK
     Route: 048

REACTIONS (3)
  - Cardiopulmonary failure [Unknown]
  - Hypertension [Unknown]
  - Product use issue [Unknown]
